FAERS Safety Report 8926546 (Version 1)
Quarter: 2012Q4

REPORT INFORMATION
  Report Type: 
  Country: US (occurrence: US)
  Receive Date: 20121127
  Receipt Date: 20121127
  Transmission Date: 20130627
  Serious: Yes (Other)
  Sender: FDA-Public Use
  Company Number: US-BAYER-2012-121491

PATIENT
  Age: 47 Year
  Sex: Male
  Weight: 77.1 kg

DRUGS (1)
  1. ALEVE CAPLET/TABLET,MIDOL EXTENDED RELIEF CAPLET [Suspect]
     Indication: BACK ACHE
     Dosage: UNK

REACTIONS (12)
  - Incorrect dose administered [None]
  - Urticaria [None]
  - Swelling face [Recovered/Resolved]
  - Nausea [Recovered/Resolved]
  - Haematemesis [Recovered/Resolved]
  - Eating disorder [None]
  - Pruritus [None]
  - White blood cell count increased [None]
  - Drug hypersensitivity [None]
  - Angioedema [None]
  - Rash [None]
  - Dehydration [None]
